FAERS Safety Report 13589020 (Version 1)
Quarter: 2017Q2

REPORT INFORMATION
  Report Type: Report from Study
  Country: CO (occurrence: CO)
  Receive Date: 20170529
  Receipt Date: 20170529
  Transmission Date: 20170830
  Serious: Yes (Other)
  Sender: FDA-Public Use
  Company Number: CO-AMGEN-COLSL2017010495

PATIENT
  Age: 54 Year
  Sex: Male

DRUGS (1)
  1. VECTIBIX [Suspect]
     Active Substance: PANITUMUMAB
     Indication: COLORECTAL CANCER METASTATIC
     Dosage: 380 MG, Q2WK
     Route: 042
     Dates: start: 20161227

REACTIONS (6)
  - Skin exfoliation [Recovering/Resolving]
  - Seborrhoeic dermatitis [Recovering/Resolving]
  - Thrombocytopenia [Not Recovered/Not Resolved]
  - Erythema [Recovering/Resolving]
  - Rash [Not Recovered/Not Resolved]
  - Dermatitis acneiform [Recovering/Resolving]

NARRATIVE: CASE EVENT DATE: 20170103
